FAERS Safety Report 10146993 (Version 1)
Quarter: 2014Q2

REPORT INFORMATION
  Report Type: Spontaneous
  Country: US (occurrence: None)
  Receive Date: 20140430
  Receipt Date: 20140430
  Transmission Date: 20141212
  Serious: Yes (Hospitalization)
  Sender: FDA-Public Use
  Company Number: None

PATIENT
  Age: 57 Year
  Sex: Male

DRUGS (3)
  1. CITALOPRAM [Suspect]
     Indication: BIPOLAR DISORDER
     Dosage: UNKNOWN, UNKNOWN, PO
     Route: 048
     Dates: start: 20140116
  2. CITALOPRAM [Concomitant]
  3. ARIPIPRAZOLE [Concomitant]

REACTIONS (7)
  - Oxygen saturation decreased [None]
  - Overdose [None]
  - Unresponsive to stimuli [None]
  - PCO2 increased [None]
  - Oxygen saturation [None]
  - Hypothermia [None]
  - Overdose [None]
